FAERS Safety Report 6273115-3 (Version None)
Quarter: 2009Q3

REPORT INFORMATION
  Report Type: 
  Country: None (occurrence: None)
  Receive Date: 20090715
  Receipt Date: 20090715
  Transmission Date: 20100115
  Serious: Yes (Disabling)
  Sender: FDA-Public Use
  Company Number: None

PATIENT
  Age: 57 Year
  Sex: Female
  Weight: 68.0396 kg

DRUGS (6)
  1. REBIF [Suspect]
     Indication: MULTIPLE SCLEROSIS
     Dosage: 1 3XWK SUBCUTANE
     Route: 058
     Dates: start: 20080101, end: 20081001
  2. ASACOL [Concomitant]
  3. LEXAPRO [Concomitant]
  4. WELLBUTRIN [Concomitant]
  5. BACTRIM [Concomitant]
  6. FOSAMAX [Concomitant]

REACTIONS (1)
  - FAECAL INCONTINENCE [None]
